FAERS Safety Report 5788314-4 (Version None)
Quarter: 2008Q2

REPORT INFORMATION
  Report Type: 
  Country: None (occurrence: None)
  Receive Date: 20080623
  Receipt Date: 20080617
  Transmission Date: 20081010
  Serious: Yes (Hospitalization)
  Sender: FDA-Public Use
  Company Number: CHPA2008US10191

PATIENT
  Sex: Female

DRUGS (1)
  1. BENEFIBER W/ WHEAT DEXTRIN  (WHEAT DEXTRIN) CAPLET [Suspect]
     Indication: DIARRHOEA
     Dosage: 2255.4 MG, BID, ORAL
     Route: 048

REACTIONS (1)
  - DEHYDRATION [None]
